FAERS Safety Report 4992219-6 (Version None)
Quarter: 2006Q2

REPORT INFORMATION
  Report Type: 
  Country: None (occurrence: None)
  Receive Date: 20060502
  Receipt Date: 20060425
  Transmission Date: 20061013
  Serious: Yes (Hospitalization)
  Sender: FDA-Public Use
  Company Number: 060060

PATIENT
  Age: 69 Year
  Sex: Female
  Weight: 79.8331 kg

DRUGS (4)
  1. HALFLYTELY [Suspect]
     Indication: COLONOSCOPY
     Dosage: 20 MG, 1/3 SOLN; 1X, PO
     Route: 048
     Dates: start: 20060419
  2. HEART MEDICATION [Concomitant]
  3. BLOOD PRESSURE PILL [Concomitant]
  4. POTASSIUM PILLS [Concomitant]

REACTIONS (5)
  - BLOOD POTASSIUM DECREASED [None]
  - BLOOD PRESSURE INCREASED [None]
  - CHEST PAIN [None]
  - DIZZINESS [None]
  - VOMITING [None]
